FAERS Safety Report 23496622 (Version 1)
Quarter: 2024Q1

REPORT INFORMATION
  Report Type: Spontaneous
  Country: US (occurrence: None)
  Receive Date: 20240207
  Receipt Date: 20240207
  Transmission Date: 20240410
  Serious: Yes (unspecified)
  Sender: FDA-Public Use
  Company Number: None

PATIENT
  Age: 68 Year

DRUGS (14)
  1. CELECOXIB [Suspect]
     Active Substance: CELECOXIB
     Dosage: FREQUENCY : DAILY;?
     Route: 048
  2. METFORMIN HYDROCHLORIDE [Concomitant]
     Active Substance: METFORMIN HYDROCHLORIDE
  3. PIOGLITAZONE TAB 15MG [Concomitant]
  4. GLIPIZIDE XL TAB 10MG [Concomitant]
  5. SYNTHROID TAB 150MCG [Concomitant]
  6. SYNTHROID TAB 175MCG [Concomitant]
  7. ATORVASTATIN TAB 20MG [Concomitant]
  8. PAROXETINE TAB 40MG HCL [Concomitant]
  9. OMEGA-3-ACID CAP 1GM [Concomitant]
  10. LISINOP/HCTZ TAB 20-25MG [Concomitant]
  11. PAROXETINE TAB 20MG HCL [Concomitant]
  12. TAMSULOSIN [Concomitant]
     Active Substance: TAMSULOSIN
  13. FINASTERIDE [Concomitant]
     Active Substance: FINASTERIDE
  14. AMLODIPINE [Concomitant]
     Active Substance: AMLODIPINE BESYLATE

REACTIONS (2)
  - Albumin urine present [None]
  - Renal impairment [None]

NARRATIVE: CASE EVENT DATE: 20230914
